FAERS Safety Report 5760496-X (Version None)
Quarter: 2008Q2

REPORT INFORMATION
  Report Type: 
  Country: None (occurrence: None)
  Receive Date: 20080605
  Receipt Date: 20080522
  Transmission Date: 20081010
  Serious: Yes (Hospitalization)
  Sender: FDA-Public Use
  Company Number: FR-PFIZER INC-2008047088

PATIENT
  Sex: Female

DRUGS (4)
  1. SU-011,248 [Suspect]
     Indication: BREAST CANCER METASTATIC
     Route: 048
     Dates: start: 20070730, end: 20071022
  2. SU-011,248 [Suspect]
     Route: 048
     Dates: start: 20071101, end: 20080519
  3. ESCITALOPRAM [Concomitant]
     Indication: ANXIETY
     Route: 048
  4. LORMETAZEPAM [Concomitant]
     Indication: INSOMNIA
     Route: 048
     Dates: start: 20070804

REACTIONS (2)
  - ENTEROCOLITIS INFECTIOUS [None]
  - URINARY TRACT INFECTION [None]
